FAERS Safety Report 20835194 (Version 1)
Quarter: 2022Q2

REPORT INFORMATION
  Report Type: Spontaneous
  Country: US (occurrence: None)
  Receive Date: 20220516
  Receipt Date: 20220516
  Transmission Date: 20220721
  Serious: No
  Sender: FDA-Public Use
  Company Number: None

PATIENT
  Sex: Female

DRUGS (1)
  1. OCREVUS [Suspect]
     Active Substance: OCRELIZUMAB

REACTIONS (7)
  - Throat irritation [None]
  - Ear pruritus [None]
  - Ear discomfort [None]
  - Throat tightness [None]
  - Burning sensation mucosal [None]
  - Infusion related reaction [None]
  - Urinary tract infection [None]
